FAERS Safety Report 5730241-2 (Version None)
Quarter: 2008Q2

REPORT INFORMATION
  Report Type: 
  Country: None (occurrence: None)
  Receive Date: 20080505
  Receipt Date: 20080505
  Transmission Date: 20081010
  Serious: Yes (Life-Threatening, Hospitalization)
  Sender: FDA-Public Use
  Company Number: None

PATIENT
  Age: 84 Year
  Sex: Male
  Weight: 61.2356 kg

DRUGS (3)
  1. DIGOXIN [Suspect]
     Indication: ARRHYTHMIA
     Dosage: 1 TABLET DAILY PO SEVERAL YEARS
     Route: 048
  2. AMOXICILLIN [Concomitant]
  3. METRONIDAZOLE HCL [Concomitant]

REACTIONS (7)
  - BLOOD COUNT ABNORMAL [None]
  - HELICOBACTER INFECTION [None]
  - LOSS OF CONSCIOUSNESS [None]
  - RENAL FAILURE [None]
  - SYNCOPE [None]
  - THERAPEUTIC AGENT TOXICITY [None]
  - VISION BLURRED [None]
